FAERS Safety Report 9217476 (Version 2)
Quarter: 2013Q2

REPORT INFORMATION
  Report Type: Spontaneous
  Country: AU (occurrence: AU)
  Receive Date: 20130408
  Receipt Date: 20130417
  Transmission Date: 20140414
  Serious: Yes (Other)
  Sender: FDA-Public Use
  Company Number: AU-ROCHE-1210404

PATIENT
  Age: 63 Year
  Sex: Female

DRUGS (4)
  1. ACTILYSE [Suspect]
     Indication: ISCHAEMIC STROKE
     Route: 040
  2. ACTILYSE [Suspect]
     Route: 042
  3. HEPARIN [Suspect]
     Indication: ISCHAEMIC STROKE
     Route: 040
  4. UROKINASE [Suspect]
     Indication: ISCHAEMIC STROKE
     Route: 065

REACTIONS (3)
  - Drug ineffective [Unknown]
  - Systolic hypertension [Unknown]
  - Haemorrhagic transformation stroke [Unknown]
